FAERS Safety Report 21385766 (Version 1)
Quarter: 2022Q3

REPORT INFORMATION
  Report Type: Spontaneous
  Country: IN (occurrence: IN)
  Receive Date: 20220928
  Receipt Date: 20220928
  Transmission Date: 20221027
  Serious: Yes (Other)
  Sender: FDA-Public Use
  Company Number: IN-MLMSERVICE-20220913-3786659-2

PATIENT
  Age: 25 Year
  Sex: Male

DRUGS (2)
  1. OLANZAPINE [Suspect]
     Active Substance: OLANZAPINE
     Indication: Schizophrenia
     Dosage: DEPOT
     Route: 030
  2. OLANZAPINE [Suspect]
     Active Substance: OLANZAPINE
     Indication: Schizophrenia
     Dosage: DOSE WAS GRADUALLY TITRATED TO 20 MG/D OVER A PERIOD OF 2 WEEKS
     Route: 048

REACTIONS (1)
  - Retrograde ejaculation [Recovering/Resolving]
